FAERS Safety Report 15376951 (Version 3)
Quarter: 2018Q4

REPORT INFORMATION
  Report Type: Spontaneous
  Country: US (occurrence: US)
  Receive Date: 20180913
  Receipt Date: 20181001
  Transmission Date: 20190204
  Serious: No
  Sender: FDA-Public Use
  Company Number: US-BIOGEN-2018BI00629737

PATIENT
  Age: 34 Year
  Sex: Female

DRUGS (1)
  1. AVONEX [Suspect]
     Active Substance: INTERFERON BETA-1A
     Indication: MULTIPLE SCLEROSIS
     Route: 030
     Dates: start: 20180511

REACTIONS (9)
  - Hypoaesthesia [Unknown]
  - Injection site swelling [Unknown]
  - Device difficult to use [Unknown]
  - Product complaint [Unknown]
  - Influenza like illness [Unknown]
  - Migraine [Unknown]
  - Injection site bruising [Unknown]
  - Memory impairment [Unknown]
  - Injection site pain [Unknown]

NARRATIVE: CASE EVENT DATE: 201809
